FAERS Safety Report 6322742-3 (Version None)
Quarter: 2009Q3

REPORT INFORMATION
  Report Type: 
  Country: None (occurrence: None)
  Receive Date: 20090824
  Receipt Date: 20090310
  Transmission Date: 20100115
  Serious: No
  Sender: FDA-Public Use
  Company Number: US-ABBOTT-09P-163-0561880-00

PATIENT
  Sex: Female

DRUGS (18)
  1. NIASPAN [Suspect]
     Indication: HIGH DENSITY LIPOPROTEIN DECREASED
     Dates: start: 20090101
  2. AMLODIPINE [Concomitant]
     Indication: DRUG USE FOR UNKNOWN INDICATION
  3. CLONIDINE [Concomitant]
     Indication: DRUG USE FOR UNKNOWN INDICATION
  4. METOPROLOL [Concomitant]
     Indication: DRUG USE FOR UNKNOWN INDICATION
  5. GLIMEPIRIDE [Concomitant]
     Indication: DRUG USE FOR UNKNOWN INDICATION
  6. PREVACID [Concomitant]
     Indication: DRUG USE FOR UNKNOWN INDICATION
  7. COLCHICINE [Concomitant]
     Indication: DRUG USE FOR UNKNOWN INDICATION
  8. METOCLOPRAM GI [Concomitant]
     Indication: DRUG USE FOR UNKNOWN INDICATION
  9. PREMARIN [Concomitant]
     Indication: DRUG USE FOR UNKNOWN INDICATION
  10. BENICAR HCT [Concomitant]
     Indication: DRUG USE FOR UNKNOWN INDICATION
  11. VESICARE [Concomitant]
     Indication: DRUG USE FOR UNKNOWN INDICATION
  12. SOMA [Concomitant]
     Indication: DRUG USE FOR UNKNOWN INDICATION
  13. QUINAPRIL [Concomitant]
     Indication: DRUG USE FOR UNKNOWN INDICATION
  14. AMITRIPTYLINE [Concomitant]
     Indication: DRUG USE FOR UNKNOWN INDICATION
  15. KLOR-CON [Concomitant]
     Indication: DRUG USE FOR UNKNOWN INDICATION
  16. LANTUS [Concomitant]
     Indication: DRUG USE FOR UNKNOWN INDICATION
  17. HUMALOG [Concomitant]
     Indication: DRUG USE FOR UNKNOWN INDICATION
  18. PRAVASTATIN [Concomitant]
     Indication: DRUG USE FOR UNKNOWN INDICATION

REACTIONS (2)
  - FLUSHING [None]
  - PRURITUS [None]
